FAERS Safety Report 23667917 (Version 1)
Quarter: 2024Q1

REPORT INFORMATION
  Report Type: Other
  Country: US (occurrence: None)
  Receive Date: 20240325
  Receipt Date: 20240325
  Transmission Date: 20240410
  Serious: Yes (Other)
  Sender: FDA-Public Use
  Company Number: US-ROCHE-3530599

PATIENT
  Age: 33 Year
  Sex: Male

DRUGS (2)
  1. COTELLIC [Suspect]
     Active Substance: COBIMETINIB
     Indication: Haematological malignancy
     Dosage: TAKE 1 TABLET BY MOUTH DAILY FOR 21 DAYS, THEN 7 DAYS OFF, DAILY FOR 21 DAYS, THEN 7 DAYS FOR 21 DAY
     Route: 048
  2. COTELLIC [Suspect]
     Active Substance: COBIMETINIB
     Indication: Acute lymphocytic leukaemia

REACTIONS (2)
  - Off label use [Unknown]
  - Neoplasm malignant [Unknown]
